FAERS Safety Report 12385314 (Version 1)
Quarter: 2016Q2

REPORT INFORMATION
  Report Type: Spontaneous
  Country: ES (occurrence: ES)
  Receive Date: 20160519
  Receipt Date: 20160519
  Transmission Date: 20160815
  Serious: Yes (Hospitalization)
  Sender: FDA-Public Use
  Company Number: ES-009507513-1605ESP007237

PATIENT
  Age: 65 Year
  Sex: Male

DRUGS (8)
  1. HYDROCHLOROTHIAZIDE (+) VALSARTAN [Concomitant]
     Active Substance: HYDROCHLOROTHIAZIDE\VALSARTAN
     Indication: HYPERTENSION
     Dosage: ONE DOSAGE FORM DAILY
     Route: 048
  2. GLYBURIDE. [Concomitant]
     Active Substance: GLYBURIDE
     Dosage: 5 MG ONCE DAILY
     Route: 048
  3. ACTRAPID [Concomitant]
     Active Substance: INSULIN HUMAN
     Dosage: 4 UI THREE TIMES PER DAY
     Route: 058
     Dates: end: 20160413
  4. GLUCAGEN [Concomitant]
     Active Substance: GLUCAGON HYDROCHLORIDE
     Dosage: 0.1429 MG (1 MG, 1 IN 1 WK)
     Route: 058
  5. EFFICIB [Suspect]
     Active Substance: METFORMIN HYDROCHLORIDE\SITAGLIPTIN PHOSPHATE
     Indication: TYPE 2 DIABETES MELLITUS
     Dosage: 1 TABLET TWO TIMES PER DAY
     Route: 048
     Dates: start: 20160407, end: 20160428
  6. AMLODIPINE [Concomitant]
     Active Substance: AMLODIPINE BESYLATE
     Indication: HYPERTENSION
     Dosage: 5 MG ONCE DAILY
     Route: 048
  7. CLOPERASTINE FENDIZOATE [Concomitant]
     Dosage: UNK
     Route: 048
  8. ABASAGLAR [Concomitant]
     Active Substance: INSULIN GLARGINE
     Dosage: 22 IU ONCE DAILY
     Route: 058

REACTIONS (2)
  - Rash [Recovered/Resolved]
  - Pyrexia [Recovered/Resolved]

NARRATIVE: CASE EVENT DATE: 20160421
